FAERS Safety Report 7942535-0 (Version None)
Quarter: 2011Q4

REPORT INFORMATION
  Report Type: 
  Country: None (occurrence: None)
  Receive Date: 20111128
  Receipt Date: 20111117
  Transmission Date: 20120403
  Serious: Yes (Hospitalization)
  Sender: FDA-Public Use
  Company Number: FR-VIIV HEALTHCARE LIMITED-B0763327A

PATIENT
  Sex: Female

DRUGS (15)
  1. NEXIUM [Concomitant]
     Dosage: 20MG PER DAY
  2. EPIVIR [Suspect]
     Indication: HIV INFECTION
     Dosage: 10MG PER DAY
     Route: 048
  3. SUSTIVA [Suspect]
     Indication: PRODUCT USED FOR UNKNOWN INDICATION
     Dosage: 600MG PER DAY
     Route: 048
  4. PREDNISOLONE [Concomitant]
     Dosage: 7.5MG PER DAY
  5. BISOPROLOL FUMARATE [Concomitant]
     Dosage: 5MG PER DAY
  6. EUPRESSYL [Concomitant]
     Dosage: 60MG THREE TIMES PER DAY
  7. ZIAGEN [Suspect]
     Indication: HIV INFECTION
     Dosage: 300MG TWICE PER DAY
     Route: 048
  8. SINGULAIR [Concomitant]
     Dosage: 10MG PER DAY
  9. MYCOPHENOLATE MOFETIL (CELLCEPT) [Suspect]
     Indication: PRODUCT USED FOR UNKNOWN INDICATION
     Dosage: 500MG TWICE PER DAY
     Route: 048
     Dates: start: 20100101
  10. PRAVASTATIN [Concomitant]
     Dosage: 20MG PER DAY
  11. AMLODIPINE BESYLATE [Concomitant]
     Dosage: 15MG PER DAY
  12. ARANESP [Concomitant]
     Dosage: 60MCG EVERY TWO WEEKS
  13. PROGRAF [Suspect]
     Indication: PRODUCT USED FOR UNKNOWN INDICATION
     Dosage: 10MG TWICE PER DAY
     Route: 048
     Dates: start: 20100101
  14. FERROUS SULFATE TAB [Concomitant]
     Dosage: 1TAB PER DAY
     Route: 048
  15. FLUTICASONE PROPIONATE [Concomitant]
     Dosage: 500MCG TWICE PER DAY

REACTIONS (1)
  - NEUTROPENIA [None]
